FAERS Safety Report 6866605-3 (Version None)
Quarter: 2010Q3

REPORT INFORMATION
  Report Type: 
  Country: None (occurrence: None)
  Receive Date: 20100722
  Receipt Date: 20100601
  Transmission Date: 20110219
  Serious: Yes (Death, Hospitalization)
  Sender: FDA-Public Use
  Company Number: JP-BAYER-200912452BYL

PATIENT
  Age: 80 Year
  Sex: Male
  Weight: 53 kg

DRUGS (8)
  1. NEXAVAR [Suspect]
     Indication: HEPATIC NEOPLASM MALIGNANT
     Dosage: TOTAL DAILY DOSE: 800 MG  UNIT DOSE: 200 MG
     Route: 048
     Dates: start: 20090626, end: 20090703
  2. NEXAVAR [Suspect]
     Dosage: UNIT DOSE: 200 MG
     Route: 048
     Dates: start: 20090703, end: 20090708
  3. NEXAVAR [Suspect]
     Dosage: TOTAL DAILY DOSE: 400 MG  UNIT DOSE: 200 MG
     Route: 048
     Dates: start: 20090903, end: 20090925
  4. OXYCONTIN [Concomitant]
     Dosage: STARTED BEFORE NEXAVAR ADMINISTRATION
     Route: 048
  5. MOBIC [Concomitant]
     Dosage: STARTED BEFORE NEXAVAR ADMINISTRATION
     Route: 048
  6. TAKEPRON [Concomitant]
     Dosage: STARTED BEFORE NEXAVAR ADMINISTRATION
     Route: 048
  7. MAGMITT [Concomitant]
     Dosage: STARTED BEFORE NEXAVAR ADMINISTRATION
     Route: 048
  8. OPSO [Concomitant]
     Indication: PAIN
     Dosage: STARTED BEFORE NEXAVAR ADMINISTRATION
     Route: 048

REACTIONS (3)
  - HEPATIC NEOPLASM MALIGNANT [None]
  - LIVER DISORDER [None]
  - LIVER FUNCTION TEST ABNORMAL [None]
